FAERS Safety Report 7937951-7 (Version None)
Quarter: 2011Q4

REPORT INFORMATION
  Report Type: 
  Country: None (occurrence: None)
  Receive Date: 20111123
  Receipt Date: 20111121
  Transmission Date: 20120403
  Serious: Yes (Death)
  Sender: FDA-Public Use
  Company Number: US-GILEAD-2011-0047130

PATIENT
  Age: 69 Year
  Sex: Male

DRUGS (3)
  1. LETAIRIS [Suspect]
     Indication: PRODUCT USED FOR UNKNOWN INDICATION
     Dosage: 10 MG, UNK
     Route: 048
     Dates: end: 20111121
  2. VENTAVIS [Concomitant]
  3. ADCIRCA [Concomitant]

REACTIONS (1)
  - DEATH [None]
